FAERS Safety Report 24344276 (Version 1)
Quarter: 2024Q3

REPORT INFORMATION
  Report Type: Spontaneous
  Country: US (occurrence: US)
  Receive Date: 20240920
  Receipt Date: 20240920
  Transmission Date: 20241016
  Serious: Yes (Disabling, Other)
  Sender: MERCK
  Company Number: US-009507513-2409USA005586

PATIENT
  Sex: Female

DRUGS (1)
  1. JANUMET [Suspect]
     Active Substance: METFORMIN HYDROCHLORIDE\SITAGLIPTIN PHOSPHATE
     Indication: Diabetes mellitus
     Dosage: UNK
     Route: 048

REACTIONS (2)
  - Disability [Not Recovered/Not Resolved]
  - Inability to afford medication [Unknown]
